FAERS Safety Report 23469337 (Version 1)
Quarter: 2024Q1

REPORT INFORMATION
  Report Type: Spontaneous
  Country: CA (occurrence: CA)
  Receive Date: 20240202
  Receipt Date: 20240202
  Transmission Date: 20240410
  Serious: Yes (Death, Hospitalization, Other)
  Sender: FDA-Public Use
  Company Number: CA-SANDOZ-SDZ2024CA010469

PATIENT
  Age: 67 Year
  Sex: Male
  Weight: 78 kg

DRUGS (3)
  1. OPDIVO [Suspect]
     Active Substance: NIVOLUMAB
     Indication: Bladder cancer
     Dosage: 480.0 MG,1 EVERY 4 WEEKS
     Route: 042
  2. OPDIVO [Suspect]
     Active Substance: NIVOLUMAB
     Indication: Bladder transitional cell carcinoma
     Dosage: 1 EVERY 4 WEEKS
     Route: 042
  3. PANTOPRAZOLE SODIUM [Suspect]
     Active Substance: PANTOPRAZOLE SODIUM
     Indication: Gastrooesophageal reflux disease
     Dosage: UNK
     Route: 065

REACTIONS (25)
  - Blood pressure systolic increased [Fatal]
  - Blood creatinine increased [Fatal]
  - Back pain [Fatal]
  - Weight increased [Fatal]
  - Anaemia [Fatal]
  - Constipation [Fatal]
  - Dizziness [Fatal]
  - Dry skin [Fatal]
  - Dyspnoea exertional [Fatal]
  - Fatigue [Fatal]
  - Gastrooesophageal reflux disease [Fatal]
  - General physical health deterioration [Fatal]
  - Headache [Fatal]
  - Heart rate decreased [Fatal]
  - Hyperthermia [Fatal]
  - Metastatic carcinoma of the bladder [Fatal]
  - Muscular weakness [Fatal]
  - Nausea [Fatal]
  - Pain in extremity [Fatal]
  - Pneumonia [Fatal]
  - Pruritus [Fatal]
  - Sleep disorder [Fatal]
  - Vomiting [Fatal]
  - Weight decreased [Fatal]
  - Product dose omission issue [Fatal]
